FAERS Safety Report 9257760 (Version 3)
Quarter: 2013Q3

REPORT INFORMATION
  Report Type: Spontaneous
  Country: US (occurrence: US)
  Receive Date: 20130426
  Receipt Date: 20130717
  Transmission Date: 20140515
  Serious: Yes (Hospitalization, Other)
  Sender: FDA-Public Use
  Company Number: US-ASTELLAS-2013US004436

PATIENT
  Age: 64 Year
  Sex: Male
  Weight: 112 kg

DRUGS (8)
  1. PROGRAF [Suspect]
     Indication: RENAL TRANSPLANT
     Dosage: 3 MG, UID/QD
     Route: 048
     Dates: start: 20070315
  2. COUMADIN /00014802/ [Suspect]
     Indication: ANTICOAGULANT THERAPY
     Dosage: 5 MG, UID/QD
     Route: 048
  3. APO-PREDNISONE [Concomitant]
     Indication: KIDNEY TRANSPLANT REJECTION
     Dosage: 10 MG, UID/QD
     Route: 048
  4. METOPROLOL [Concomitant]
     Indication: HYPERTENSION
     Dosage: 100 MG, UID/QD
     Route: 048
  5. NEURONTIN [Concomitant]
     Indication: DIABETES MELLITUS
     Dosage: 200 MG, UID/QD
     Route: 048
  6. PANTOPRAZOLE [Concomitant]
     Indication: GASTROOESOPHAGEAL REFLUX DISEASE
     Dosage: 40 MG, UID/QD
     Route: 048
  7. SYNTHROID [Concomitant]
     Indication: HYPOTHYROIDISM
     Dosage: 120 UG, UID/QD
     Route: 048
  8. GLIMEPIRIDE [Concomitant]
     Indication: DIABETES MELLITUS
     Dosage: 8 MG, UID/QD
     Route: 048

REACTIONS (4)
  - Hospitalisation [Recovered/Resolved]
  - Amnesia [Unknown]
  - International normalised ratio increased [Unknown]
  - Respiratory tract congestion [Unknown]
